FAERS Safety Report 23402714 (Version 1)
Quarter: 2024Q1

REPORT INFORMATION
  Report Type: Spontaneous
  Country: US (occurrence: US)
  Receive Date: 20240115
  Receipt Date: 20240115
  Transmission Date: 20240410
  Serious: Yes (Other)
  Sender: FDA-Public Use
  Company Number: US-PFIZER INC-202400009392

PATIENT
  Age: 57 Year
  Sex: Female
  Weight: 86.18 kg

DRUGS (1)
  1. PAXLOVID [Suspect]
     Active Substance: NIRMATRELVIR\RITONAVIR
     Indication: COVID-19 treatment
     Dosage: [NIRMATRELVIR 300 MG]/[RITONAVIR 100 MG], 2X/DAY FOR THREE IN THE MORNINGS AND THREE IN THE EVENINGS
     Route: 048
     Dates: start: 20240104

REACTIONS (3)
  - Rectal haemorrhage [Recovered/Resolved]
  - Diarrhoea [Not Recovered/Not Resolved]
  - Proctalgia [Unknown]

NARRATIVE: CASE EVENT DATE: 20240101
